FAERS Safety Report 4695015-2 (Version None)
Quarter: 2005Q2

REPORT INFORMATION
  Report Type: 
  Country: None (occurrence: None)
  Receive Date: 20050617
  Receipt Date: 20050603
  Transmission Date: 20051028
  Serious: Yes (Hospitalization)
  Sender: FDA-Public Use
  Company Number: 2005S1003692

PATIENT
  Sex: Male

DRUGS (8)
  1. APOMORPHINE HYDROCHLORIDE (APOMORPHINE HYDROCHLORIDE) [Suspect]
     Indication: PARKINSON'S DISEASE
     Dosage: 50 MG;IV
     Route: 042
     Dates: start: 20050306, end: 20050306
  2. ROBINIROLE [Concomitant]
  3. HYDROCHLORIDE [Concomitant]
  4. CITALOPRAM [Concomitant]
  5. DOMPERIDONE [Concomitant]
  6. ENTACAPONE [Concomitant]
  7. CARBIDOPA AND LEVODOPA [Concomitant]
  8. TOLTERODINE [Concomitant]

REACTIONS (6)
  - FALL [None]
  - HYPERHIDROSIS [None]
  - HYPOTENSION [None]
  - INCORRECT DRUG ADMINISTRATION RATE [None]
  - MEDICAL DEVICE COMPLICATION [None]
  - PALLOR [None]
